FAERS Safety Report 10101613 (Version 1)
Quarter: 2014Q2

REPORT INFORMATION
  Report Type: Report from Study
  Country: US (occurrence: US)
  Receive Date: 20140424
  Receipt Date: 20140424
  Transmission Date: 20141212
  Serious: Yes (Other)
  Sender: FDA-Public Use
  Company Number: US-JNJFOC-20140416297

PATIENT
  Age: 66 Year
  Sex: Female

DRUGS (10)
  1. SIMPONI ARIA [Suspect]
     Indication: RHEUMATOID ARTHRITIS
     Route: 042
     Dates: start: 201404
  2. CELEBREX [Concomitant]
     Indication: ARTHRITIS
     Route: 048
     Dates: start: 1999
  3. PLAVIX [Concomitant]
     Indication: CEREBROVASCULAR ACCIDENT
     Route: 048
  4. BABY ASPIRIN [Concomitant]
     Indication: COAGULOPATHY
     Route: 048
  5. CHLORTHALIDONE [Concomitant]
     Indication: DIURETIC THERAPY
     Route: 048
     Dates: start: 2013
  6. FOLIC ACID [Concomitant]
     Route: 048
  7. ATIVAN [Concomitant]
     Indication: RELAXATION THERAPY
     Dosage: AS NEEDED
     Route: 048
  8. ATIVAN [Concomitant]
     Indication: ANXIETY
     Dosage: AS NEEDED
     Route: 048
  9. SULFASALAZINE [Concomitant]
     Indication: ARTHRITIS
     Route: 048
     Dates: start: 2013
  10. METOPROLOL [Concomitant]
     Indication: HEART RATE IRREGULAR
     Route: 048

REACTIONS (4)
  - Sinusitis [Unknown]
  - Chondropathy [Not Recovered/Not Resolved]
  - Arthritis [Not Recovered/Not Resolved]
  - Musculoskeletal stiffness [Not Recovered/Not Resolved]
